FAERS Safety Report 9300042 (Version 2)
Quarter: 2013Q3

REPORT INFORMATION
  Report Type: Spontaneous
  Country: US (occurrence: US)
  Receive Date: 20130521
  Receipt Date: 20130730
  Transmission Date: 20140515
  Serious: No
  Sender: FDA-Public Use
  Company Number: US-B.I. PHARMACEUTICALS,INC./RIDGEFIELD-2013-BI-14008BP

PATIENT
  Age: 54 Year
  Sex: Female
  Weight: 85 kg

DRUGS (9)
  1. COMBIVENT [Suspect]
     Indication: EMPHYSEMA
     Dosage: STRENGTH: 18MCG/103MCG; DAILY DOSE: 144MCG/824MCG
     Route: 055
     Dates: start: 1999
  2. GABAPENTIN [Concomitant]
     Indication: MUSCULOSKELETAL DISCOMFORT
     Dosage: 600 MG
     Route: 048
  3. PROZAC [Concomitant]
     Indication: DEPRESSION
     Dosage: 50 MG
     Route: 048
  4. HYDROCHLOROTHIAZIDE [Concomitant]
     Indication: FLUID RETENTION
     Dosage: 25 MG
     Route: 048
  5. PROAIR [Concomitant]
     Indication: DYSPNOEA
     Dosage: FORMULATION: (INHALATION AEROSOL)
     Route: 048
  6. IPRATROPIUM BROMIDE/ALBUTEROL NEBS [Concomitant]
     Indication: DYSPNOEA
     Route: 055
  7. OMEPRAZOLE [Concomitant]
     Indication: GASTROOESOPHAGEAL REFLUX DISEASE
     Dosage: 20 MG
     Route: 048
  8. PERCOCET [Concomitant]
     Indication: CARPAL TUNNEL SYNDROME
     Dosage: STRENGTH: 5MG/325MG;
     Route: 048
  9. PERCOCET [Concomitant]
     Indication: BUNION

REACTIONS (3)
  - Dyspnoea [Not Recovered/Not Resolved]
  - Dry throat [Not Recovered/Not Resolved]
  - Product quality issue [Not Recovered/Not Resolved]
